FAERS Safety Report 8495009-5 (Version None)
Quarter: 2012Q2

REPORT INFORMATION
  Report Type: 
  Country: None (occurrence: None)
  Receive Date: 20120627
  Receipt Date: 20120615
  Transmission Date: 20120825
  Serious: Yes (Disabling)
  Sender: FDA-Public Use
  Company Number: 2012SP023456

PATIENT
  Sex: Female

DRUGS (7)
  1. HYDROCHLOROTHIAZIDE [Concomitant]
  2. DULERA [Suspect]
     Indication: PRODUCT USED FOR UNKNOWN INDICATION
  3. SINGULAIR [Suspect]
     Indication: ASTHMA
     Dosage: 10 MG;QD;PO
     Route: 048
     Dates: start: 20120326, end: 20120501
  4. XOPENEX [Concomitant]
  5. PREVACID [Concomitant]
  6. IBUPROFEN (ADVIL) [Concomitant]
  7. ALLEGRA [Concomitant]

REACTIONS (2)
  - GASTRITIS [None]
  - OESOPHAGITIS [None]
